FAERS Safety Report 26192745 (Version 1)
Quarter: 2025Q4

REPORT INFORMATION
  Report Type: Spontaneous
  Country: KR (occurrence: KR)
  Receive Date: 20251223
  Receipt Date: 20251223
  Transmission Date: 20260118
  Serious: Yes (Hospitalization, Other)
  Sender: BRISTOL-MYERS SQUIBB COMPANY
  Company Number: KR-BRISTOL-MYERS SQUIBB COMPANY-2025-171436

PATIENT
  Age: 71 Year
  Sex: Female

DRUGS (2)
  1. ABRAXANE [Suspect]
     Active Substance: PACLITAXEL
     Indication: Pancreatic carcinoma
     Dates: start: 20230911
  2. GEMCITABINE HYDROCHLORIDE [Suspect]
     Active Substance: GEMCITABINE HYDROCHLORIDE
     Indication: Pancreatic carcinoma
     Dates: start: 20230911

REACTIONS (4)
  - Myalgia [Recovered/Resolved]
  - Neuropathy peripheral [Recovered/Resolved]
  - Febrile neutropenia [Recovered/Resolved]
  - Paraesthesia [Recovered/Resolved]

NARRATIVE: CASE EVENT DATE: 20230918
